FAERS Safety Report 9714347 (Version 1)
Quarter: 2013Q4

REPORT INFORMATION
  Report Type: Spontaneous
  Country: US (occurrence: US)
  Receive Date: 20131126
  Receipt Date: 20131126
  Transmission Date: 20140711
  Serious: Yes (Hospitalization)
  Sender: FDA-Public Use
  Company Number: US-PFIZER INC-2013336140

PATIENT
  Sex: Female

DRUGS (1)
  1. XELJANZ [Suspect]
     Dosage: UNK
     Dates: start: 201310

REACTIONS (11)
  - Pain in extremity [Unknown]
  - Paraesthesia [Unknown]
  - Weight bearing difficulty [Unknown]
  - Pain [Unknown]
  - Chills [Unknown]
  - Urinary tract infection [Unknown]
  - Oropharyngeal pain [Unknown]
  - Muscular weakness [Unknown]
  - Flushing [Unknown]
  - Blood pressure increased [Unknown]
  - Tongue haemorrhage [Unknown]
